FAERS Safety Report 19683188 (Version 2)
Quarter: 2021Q3

REPORT INFORMATION
  Report Type: Spontaneous
  Country: US (occurrence: US)
  Receive Date: 20210811
  Receipt Date: 20210821
  Transmission Date: 20211014
  Serious: Yes (Other)
  Sender: FDA-Public Use
  Company Number: US-AUROBINDO-AUR-APL-2021-034295

PATIENT
  Age: 68 Year
  Sex: Male
  Weight: 73.4 kg

DRUGS (1)
  1. FOLOTYN [Suspect]
     Active Substance: PRALATREXATE
     Indication: PERIPHERAL T-CELL LYMPHOMA UNSPECIFIED STAGE III
     Dosage: STARTING AND ENDING DOSE WAS 30 (UNSPECIFIED UNITS)
     Route: 065

REACTIONS (2)
  - Peripheral T-cell lymphoma unspecified recurrent [Unknown]
  - Malignant neoplasm progression [Unknown]
